FAERS Safety Report 4640032-1 (Version None)
Quarter: 2005Q2

REPORT INFORMATION
  Report Type: 
  Country: None (occurrence: None)
  Receive Date: 20050328
  Receipt Date: 20050104
  Transmission Date: 20051028
  Serious: No
  Sender: FDA-Public Use
  Company Number: USA050187463

PATIENT
  Age: 57 Year
  Sex: Male
  Weight: 143 kg

DRUGS (7)
  1. STRATTERA [Suspect]
     Indication: ATTENTION DEFICIT/HYPERACTIVITY DISORDER
     Dosage: 80 MG DAY
     Dates: start: 20041226, end: 20050103
  2. ACTOS [Concomitant]
  3. HYZAAR [Concomitant]
  4. GLUCOTROL [Concomitant]
  5. ASPIRIN [Concomitant]
  6. GLUCOPHAGE [Concomitant]
  7. LAMICTAL [Concomitant]

REACTIONS (13)
  - ANOREXIA [None]
  - BODY TEMPERATURE INCREASED [None]
  - CHROMATURIA [None]
  - CONSTIPATION [None]
  - DIZZINESS [None]
  - DRY MOUTH [None]
  - DYSURIA [None]
  - FATIGUE [None]
  - HOT FLUSH [None]
  - HYPERHIDROSIS [None]
  - HYPERSOMNIA [None]
  - URINARY INCONTINENCE [None]
  - VOMITING [None]
